FAERS Safety Report 6470873-X (Version None)
Quarter: 2009Q4

REPORT INFORMATION
  Report Type: 
  Country: None (occurrence: None)
  Receive Date: 20091203
  Receipt Date: 20080229
  Transmission Date: 20100525
  Serious: Yes (Other)
  Sender: FDA-Public Use
  Company Number: US-ELI_LILLY_AND_COMPANY-US200801002682

PATIENT
  Sex: Female
  Weight: 102.95 kg

DRUGS (20)
  1. BYETTA [Suspect]
     Indication: TYPE 2 DIABETES MELLITUS
     Dosage: 5 UG, 2/D
     Route: 058
     Dates: start: 20070918, end: 20071018
  2. BYETTA [Suspect]
     Dosage: 10 UG, 2/D
     Route: 058
     Dates: start: 20071018
  3. LEVOXYL [Concomitant]
     Indication: HYPOTHYROIDISM
     Dosage: 25 MG, DAILY (1/D)
  4. HYDRALAZINE HCL [Concomitant]
     Indication: HYPERTENSION
     Dosage: 25 MG, 2/D
     Route: 048
     Dates: start: 20060824, end: 20080101
  5. HYDRALAZINE HCL [Concomitant]
     Dosage: 50 MG, 2/D
     Route: 048
     Dates: start: 20080101
  6. NIASPAN [Concomitant]
     Indication: LIPIDS
     Dosage: 50 MG, 2/D
     Dates: start: 20040520
  7. BENAZEPRIL HYDROCHLORIDE [Concomitant]
     Indication: HYPERTENSION
     Dosage: 40 MG, DAILY (1/D)
     Dates: start: 20041206
  8. BENAZEPRIL HYDROCHLORIDE [Concomitant]
     Dosage: 10 MG, DAILY (1/D)
  9. FUROSEMIDE [Concomitant]
     Indication: HYPERTENSION
     Dosage: 40 MG, DAILY (1/D)
     Dates: start: 20060510
  10. NORVASC [Concomitant]
     Indication: HYPERTENSION
     Dosage: 10 MG, DAILY (1/D)
     Dates: start: 20050117
  11. METOPROLOL [Concomitant]
     Indication: HYPERTENSION
     Dosage: 50 MG, 2/D
     Dates: start: 20070914
  12. METOPROLOL [Concomitant]
     Dosage: 25 MG, 2/D
  13. LOVASTATIN [Concomitant]
     Dosage: 40 MG, EACH EVENING
     Dates: start: 20040809, end: 20080108
  14. SIMVASTATIN [Concomitant]
     Dosage: 20 MG, EACH EVENING
     Dates: start: 20080108
  15. LEXAPRO [Concomitant]
     Dosage: 10 MG, DAILY (1/D)
     Dates: start: 20070702
  16. METFORMIN HCL [Concomitant]
     Dosage: 850 MG, 2/D
     Dates: start: 20030711
  17. COREG [Concomitant]
     Dosage: 12.5 MG, 2/D
     Dates: start: 20070312
  18. OXYBUTIN [Concomitant]
     Dosage: 5 MG, 2/D
  19. HYDROCHLOROTHIAZIDE [Concomitant]
     Dosage: 25 MG, DAILY (1/D)
  20. GLIPIZIDE [Concomitant]
     Dosage: 20 MG, 2/D

REACTIONS (1)
  - BREAST CANCER [None]
